FAERS Safety Report 5322277-0 (Version None)
Quarter: 2007Q2

REPORT INFORMATION
  Report Type: 
  Country: None (occurrence: None)
  Receive Date: 20070511
  Receipt Date: 20070509
  Transmission Date: 20071010
  Serious: Yes (Disabling)
  Sender: FDA-Public Use
  Company Number: A0650606A

PATIENT
  Age: 53 Year
  Sex: Female

DRUGS (7)
  1. PAXIL [Suspect]
     Indication: OBSESSIVE-COMPULSIVE DISORDER
     Dosage: 37.5MG PER DAY
     Route: 048
     Dates: start: 20061001
  2. PAXIL [Suspect]
     Dosage: 40MG PER DAY
     Route: 048
     Dates: start: 20061201, end: 20070301
  3. TRAZODONE HCL [Concomitant]
  4. METFORMIN HCL [Concomitant]
  5. SPIRONOLACTONE [Concomitant]
  6. AVALIDE [Concomitant]
  7. NORVASC [Concomitant]

REACTIONS (4)
  - ANXIETY [None]
  - ILL-DEFINED DISORDER [None]
  - THERAPEUTIC RESPONSE DECREASED [None]
  - THOUGHT INSERTION [None]
